FAERS Safety Report 25814221 (Version 2)
Quarter: 2025Q4

REPORT INFORMATION
  Report Type: Spontaneous
  Country: CA (occurrence: CA)
  Receive Date: 20250917
  Receipt Date: 20251023
  Transmission Date: 20260118
  Serious: Yes (Other)
  Sender: SANOFI AVENTIS
  Company Number: CA-SA-2025SA272172

PATIENT
  Sex: Female

DRUGS (3)
  1. INSULIN ASPART [Suspect]
     Active Substance: INSULIN ASPART
     Indication: Type 2 diabetes mellitus
     Dosage: 6 IU, TID
     Dates: start: 20231201, end: 20240601
  2. TRESIBA [Suspect]
     Active Substance: INSULIN DEGLUDEC
     Indication: Type 2 diabetes mellitus
     Dosage: 10 IU, BID
     Route: 058
     Dates: start: 20170101
  3. TRESIBA [Suspect]
     Active Substance: INSULIN DEGLUDEC
     Dosage: 12U AM AND 10-12 U PM, BID
     Route: 058

REACTIONS (4)
  - Palpitations [Unknown]
  - Weight decreased [Unknown]
  - Rash [Unknown]
  - Drug ineffective [Unknown]
